FAERS Safety Report 5123804-9 (Version None)
Quarter: 2006Q3

REPORT INFORMATION
  Report Type: 
  Country: None (occurrence: None)
  Receive Date: 20060811
  Receipt Date: 20060608
  Transmission Date: 20061208
  Serious: No
  Sender: FDA-Public Use
  Company Number: 200615040US

PATIENT
  Age: 35 Year
  Weight: 97 kg

DRUGS (7)
  1. APIDRA [Suspect]
     Indication: DIABETES MELLITUS INSULIN-DEPENDENT
     Dosage: 25 U ONCE
     Dates: start: 20060604, end: 20060604
  2. LANTUS [Suspect]
     Indication: DIABETES MELLITUS INSULIN-DEPENDENT
     Dosage: 25 U HS
     Dates: start: 20030101
  3. OPTICLIK [Suspect]
  4. OPTICLIK [Suspect]
  5. LEVOTHYROXINE SODIUM (SYNTHRIOD) [Concomitant]
  6. OLMESARTAN MEDOXOMIL (BENICAR/USA) [Concomitant]
  7. ACETYLSALICYLIC ACID SRT [Concomitant]

REACTIONS (1)
  - BLOOD GLUCOSE DECREASED [None]
